FAERS Safety Report 15491044 (Version 1)
Quarter: 2018Q4

REPORT INFORMATION
  Report Type: Spontaneous
  Country: US (occurrence: US)
  Receive Date: 20181012
  Receipt Date: 20181012
  Transmission Date: 20190205
  Serious: No
  Sender: FDA-Public Use
  Company Number: US-BION-007123

PATIENT
  Sex: Female

DRUGS (1)
  1. PROGESTERONE BION PHARMA [Suspect]
     Active Substance: PROGESTERONE
     Indication: PREGNANCY
     Route: 067

REACTIONS (3)
  - Product colour issue [Unknown]
  - Vaginal discharge [Unknown]
  - Product use issue [Not Recovered/Not Resolved]
